FAERS Safety Report 16371139 (Version 3)
Quarter: 2019Q3

REPORT INFORMATION
  Report Type: Spontaneous
  Country: US (occurrence: US)
  Receive Date: 20190530
  Receipt Date: 20190703
  Transmission Date: 20191004
  Serious: Yes (Other)
  Sender: FDA-Public Use
  Company Number: US-BAYER-2019-105294

PATIENT
  Age: 17 Year
  Sex: Female
  Weight: 63.95 kg

DRUGS (3)
  1. KYLEENA [Suspect]
     Active Substance: LEVONORGESTREL
     Indication: CONTRACEPTION
     Dosage: 17.5 MCG/24HR, CONT
     Route: 015
     Dates: start: 20171207, end: 20190514
  2. MIRENA [Suspect]
     Active Substance: LEVONORGESTREL
     Dosage: 20 MCG/24HR, CONT
     Route: 015
     Dates: start: 20190514
  3. MIRENA [Suspect]
     Active Substance: LEVONORGESTREL

REACTIONS (6)
  - Genital haemorrhage [None]
  - Ovarian calcification [None]
  - Metrorrhagia [None]
  - Embedded device [Recovered/Resolved]
  - Device expulsion [Not Recovered/Not Resolved]
  - Pelvic fluid collection [Not Recovered/Not Resolved]

NARRATIVE: CASE EVENT DATE: 20190514
